FAERS Safety Report 7042799-4 (Version None)
Quarter: 2010Q4

REPORT INFORMATION
  Report Type: 
  Country: None (occurrence: None)
  Receive Date: 20101013
  Receipt Date: 20100217
  Transmission Date: 20110411
  Serious: No
  Sender: FDA-Public Use
  Company Number: US-ASTRAZENECA-2010SE06947

PATIENT
  Age: 56 Year
  Sex: Male
  Weight: 90.7 kg

DRUGS (5)
  1. SYMBICORT [Suspect]
     Route: 055
  2. AMLODIPINE [Concomitant]
  3. GLIPIZIDE [Concomitant]
  4. ACTOS [Concomitant]
  5. VYTORIN [Concomitant]

REACTIONS (2)
  - BLOOD GLUCOSE DECREASED [None]
  - COLD SWEAT [None]
